FAERS Safety Report 5858434-4 (Version None)
Quarter: 2008Q3

REPORT INFORMATION
  Report Type: 
  Country: None (occurrence: None)
  Receive Date: 20080826
  Receipt Date: 20080814
  Transmission Date: 20090109
  Serious: Yes (Death)
  Sender: FDA-Public Use
  Company Number: DE-AVENTIS-200812208DE

PATIENT
  Age: 67 Year
  Sex: Male
  Weight: 74.8 kg

DRUGS (12)
  1. CODE UNBROKEN [Suspect]
     Indication: PROPHYLAXIS
     Dosage: DOSE: 1 TABLET/DAY
     Route: 048
     Dates: start: 20060501, end: 20060613
  2. DOCETAXEL [Suspect]
     Indication: NON-SMALL CELL LUNG CANCER
     Route: 042
     Dates: start: 20060427, end: 20060609
  3. CARBOPLATIN [Suspect]
     Indication: NON-SMALL CELL LUNG CANCER
     Route: 042
     Dates: start: 20060427, end: 20060609
  4. OSTAC [Concomitant]
     Dosage: DOSE: 2 AMPOULES/DAY
     Route: 042
     Dates: end: 20060617
  5. VOMEX [Concomitant]
     Dosage: DOSE: 3 AMPOULES/DAY
     Route: 042
     Dates: end: 20060617
  6. PREDNISONE TAB [Concomitant]
     Route: 048
     Dates: end: 20060616
  7. PREDNISONE TAB [Concomitant]
     Route: 042
     Dates: start: 20060615, end: 20060615
  8. NORMOC [Concomitant]
     Route: 048
     Dates: end: 20060601
  9. NORMOC [Concomitant]
     Route: 048
     Dates: start: 20060614, end: 20060620
  10. METOCLOPRAMIDE [Concomitant]
     Dosage: DOSE: NOT REPORTED
     Route: 048
     Dates: end: 20080614
  11. FORTECORTIN                        /00016001/ [Concomitant]
     Indication: PROPHYLAXIS
     Route: 042
     Dates: start: 20060614, end: 20060614
  12. FORTECORTIN                        /00016001/ [Concomitant]
     Route: 042
     Dates: start: 20060614, end: 20060620

REACTIONS (5)
  - LEUKOPENIA [None]
  - NEUTROPENIA [None]
  - NEUTROPENIC SEPSIS [None]
  - RENAL FAILURE ACUTE [None]
  - STAPHYLOCOCCAL INFECTION [None]
